FAERS Safety Report 8543322-5 (Version None)
Quarter: 2012Q3

REPORT INFORMATION
  Report Type: 
  Country: None (occurrence: None)
  Receive Date: 20120716
  Receipt Date: 20120712
  Transmission Date: 20120928
  Serious: Yes (Hospitalization)
  Sender: FDA-Public Use
  Company Number: 2012160883

PATIENT
  Age: 76 Year
  Sex: Female

DRUGS (6)
  1. PREDNISOLONE [Suspect]
     Dosage: 5 MG A DAY, ORAL
     Route: 048
     Dates: start: 20120615
  2. FRAGMIN [Suspect]
     Indication: THROMBOSIS PROPHYLAXIS
     Dosage: 50000 IU DAILY, INTRAVENOUS
     Route: 042
     Dates: start: 20120615
  3. OROCAL VITAMIN D (CALCIUM CARBONATE, COLECALCIFEROL) [Suspect]
     Indication: VITAMIN D DEFICIENCY
     Dosage: 2 TABLETS, A DAY, ORAL
     Route: 048
     Dates: start: 20120615
  4. CIPROFLOXACIN [Suspect]
     Indication: PSEUDOMONAS INFECTION
     Dosage: 750 MG, 2X/DAY, ORAL
     Route: 048
     Dates: start: 20120615, end: 20120618
  5. PIPERACILLIN AND TAZOBACTAM [Suspect]
     Indication: PSEUDOMONAS INFECTION
     Dosage: 4 G, 3X/DAY, INTRAVENOUS
     Route: 042
     Dates: start: 20120515
  6. TARDYFERON B9 (FERROUS SULFATE EXSICCATED, FOLIC ACID) [Suspect]
     Indication: IRON DEFICIENCY ANAEMIA
     Dosage: 1 DF, 1X/DAY, ORAL
     Route: 048
     Dates: start: 20120615

REACTIONS (1)
  - LIVER INJURY [None]
